FAERS Safety Report 16894368 (Version 1)
Quarter: 2019Q4

REPORT INFORMATION
  Report Type: Spontaneous
  Country: US (occurrence: US)
  Receive Date: 20191007
  Receipt Date: 20191007
  Transmission Date: 20200122
  Serious: Yes (Other)
  Sender: FDA-Public Use
  Company Number: None

PATIENT
  Age: 42 Year
  Sex: Female
  Weight: 65.25 kg

DRUGS (1)
  1. DOTAREM [Suspect]
     Active Substance: GADOTERATE MEGLUMINE
     Indication: MULTIPLE SCLEROSIS
     Route: 040
     Dates: start: 20190927, end: 20190927

REACTIONS (2)
  - Swelling [None]
  - Rash [None]

NARRATIVE: CASE EVENT DATE: 20190927
